FAERS Safety Report 21696658 (Version 2)
Quarter: 2022Q4

REPORT INFORMATION
  Report Type: Spontaneous
  Country: JP (occurrence: JP)
  Receive Date: 20221207
  Receipt Date: 20221215
  Transmission Date: 20230113
  Serious: Yes (Other)
  Sender: FDA-Public Use
  Company Number: JP-002147023-NVSJ2022JP275412

PATIENT
  Age: 58 Year
  Sex: Male

DRUGS (2)
  1. TASIGNA [Suspect]
     Active Substance: NILOTINIB
     Indication: Chronic myeloid leukaemia
     Dosage: 400 MG
     Route: 048
  2. TASIGNA [Suspect]
     Active Substance: NILOTINIB
     Dosage: 600 MG
     Route: 048

REACTIONS (8)
  - Cerebral infarction [Unknown]
  - Dysarthria [Unknown]
  - Cerebral artery stenosis [Unknown]
  - Cardiovascular disorder [Unknown]
  - Chest discomfort [Unknown]
  - Chronic myeloid leukaemia [Recovering/Resolving]
  - Malignant neoplasm progression [Recovering/Resolving]
  - Drug intolerance [Unknown]
